FAERS Safety Report 7979161-3 (Version None)
Quarter: 2011Q4

REPORT INFORMATION
  Report Type: 
  Country: None (occurrence: None)
  Receive Date: 20111201
  Receipt Date: 20111117
  Transmission Date: 20120403
  Serious: Yes (Death, Life-Threatening, Hospitalization, Other)
  Sender: FDA-Public Use
  Company Number: 2011MA016600

PATIENT
  Sex: Male
  Weight: 80.7403 kg

DRUGS (30)
  1. CELEBREX [Concomitant]
  2. EMEND [Concomitant]
  3. FOLIC ACID [Concomitant]
  4. IRON [Concomitant]
  5. LORAZEPAM [Concomitant]
  6. DIGOXIN [Suspect]
     Indication: ATRIAL FIBRILLATION
     Dosage: 0.125 MG
     Dates: start: 20070719, end: 20080122
  7. COUMADIN [Concomitant]
  8. GI COCKTAIL [Concomitant]
  9. ONDANSETRON [Concomitant]
  10. HYDRALAZINE HCL [Concomitant]
  11. KLOR-CON [Concomitant]
  12. PHENERGAN [Concomitant]
  13. PROPROXYPHENE [Concomitant]
  14. ACETAMINOPHEN [Concomitant]
  15. ACETAMINOPHEN [Concomitant]
  16. PROCAINAMIDE [Concomitant]
  17. VICODIN [Concomitant]
  18. ASPIRIN [Concomitant]
  19. BENTYL [Concomitant]
  20. PROCHLORPERAZINE [Concomitant]
  21. ZOLPIDEM [Concomitant]
  22. LEVOTHYROXINE SODIUM [Concomitant]
  23. PACERONE [Concomitant]
  24. CISPLATIN [Concomitant]
  25. PREDNISONE TAB [Concomitant]
  26. PROTONIX [Concomitant]
  27. LIPITOR [Concomitant]
  28. MEGESTROL ACETATE [Concomitant]
  29. NITROGLYCERIN [Concomitant]
  30. TORADOL [Concomitant]

REACTIONS (29)
  - TRANSIENT ISCHAEMIC ATTACK [None]
  - CARDIAC ENZYMES INCREASED [None]
  - LUNG INFILTRATION [None]
  - HAEMATEMESIS [None]
  - LOSS OF CONSCIOUSNESS [None]
  - CORONARY ARTERY DISEASE [None]
  - MUSCULAR WEAKNESS [None]
  - HEART RATE IRREGULAR [None]
  - SMALL CELL LUNG CANCER STAGE UNSPECIFIED [None]
  - VENTRICULAR FIBRILLATION [None]
  - DIZZINESS [None]
  - HYPERTENSION [None]
  - ECONOMIC PROBLEM [None]
  - ATRIAL FIBRILLATION [None]
  - MALLORY-WEISS SYNDROME [None]
  - COORDINATION ABNORMAL [None]
  - CARDIAC FAILURE CONGESTIVE [None]
  - PULMONARY OEDEMA [None]
  - SURGERY [None]
  - TREATMENT NONCOMPLIANCE [None]
  - NAUSEA [None]
  - VIRAL INFECTION [None]
  - GAIT DISTURBANCE [None]
  - MITRAL VALVE INCOMPETENCE [None]
  - MULTIPLE INJURIES [None]
  - PALPITATIONS [None]
  - VOMITING [None]
  - DIARRHOEA [None]
  - FLUID OVERLOAD [None]
